FAERS Safety Report 10668063 (Version 1)
Quarter: 2014Q4

REPORT INFORMATION
  Report Type: Spontaneous
  Country: US (occurrence: US)
  Receive Date: 20141222
  Receipt Date: 20141222
  Transmission Date: 20150529
  Serious: Yes (Hospitalization)
  Sender: FDA-Public Use
  Company Number: US-SIGMA-TAU US-2014STPI000731

PATIENT
  Age: 82 Year
  Sex: Male

DRUGS (1)
  1. MATULANE [Suspect]
     Active Substance: PROCARBAZINE HYDROCHLORIDE
     Indication: HODGKIN^S DISEASE
     Dosage: 150 MG, QD
     Route: 048
     Dates: start: 20140830

REACTIONS (2)
  - Pneumonia [Not Recovered/Not Resolved]
  - Organ failure [Not Recovered/Not Resolved]

NARRATIVE: CASE EVENT DATE: 20141217
